FAERS Safety Report 9459675 (Version 2)
Quarter: 2013Q4

REPORT INFORMATION
  Report Type: Spontaneous
  Country: US (occurrence: US)
  Receive Date: 20130815
  Receipt Date: 20131023
  Transmission Date: 20140711
  Serious: Yes (Hospitalization)
  Sender: FDA-Public Use
  Company Number: US-BAYER-2013-098599

PATIENT
  Age: 27 Year
  Sex: Female
  Weight: 82.7 kg

DRUGS (3)
  1. YAZ [Suspect]
  2. ALLEGRA-D [Concomitant]
  3. ALBUTEROL [Concomitant]
     Indication: MULTIPLE ALLERGIES

REACTIONS (1)
  - Pulmonary embolism [None]
